FAERS Safety Report 6189104-3 (Version None)
Quarter: 2009Q2

REPORT INFORMATION
  Report Type: 
  Country: None (occurrence: None)
  Receive Date: 20090513
  Receipt Date: 20090506
  Transmission Date: 20091009
  Serious: Yes (Other)
  Sender: FDA-Public Use
  Company Number: US-BAYER-200911428BCC

PATIENT
  Age: 59 Year
  Sex: Male
  Weight: 104 kg

DRUGS (11)
  1. ALEVE (CAPLET) [Suspect]
     Indication: PROCEDURAL PAIN
     Dosage: 2 TO 4 CAPLETS/DAY (THERAPY DETAILS UNSPECIFIED)
     Route: 048
     Dates: start: 20090201, end: 20090505
  2. LISINOPRIL [Concomitant]
     Indication: HYPERTENSION
     Dosage: 10 MG INCREASE AFTER CONSUMER EXPERIENCED EVENT
     Dates: start: 20090301
  3. LISINOPRIL [Concomitant]
     Dates: end: 20090301
  4. METOPROLOL [Concomitant]
  5. LOVAZA [Concomitant]
  6. JANUVIA [Concomitant]
  7. GLYBURIDE [Concomitant]
  8. METFORMIN HCL [Concomitant]
  9. GENERIC ADULT ASPIRIN [Concomitant]
  10. SIMVASTATIN [Concomitant]
  11. NOVALIN INSULIN [Concomitant]

REACTIONS (2)
  - BLOOD PRESSURE INCREASED [None]
  - JOINT SWELLING [None]
